FAERS Safety Report 7207383-8 (Version None)
Quarter: 2010Q4

REPORT INFORMATION
  Report Type: 
  Country: None (occurrence: None)
  Receive Date: 20101221
  Receipt Date: 20101209
  Transmission Date: 20110411
  Serious: Yes (Disabling)
  Sender: FDA-Public Use
  Company Number: CAP10000454

PATIENT
  Age: 82 Year
  Sex: Female
  Weight: 85 kg

DRUGS (12)
  1. DIDROCAL (ETIDRONATE DISODIUM/CALCIUM CARBONATE CYCLICAL) TABLET, 400/ [Suspect]
     Indication: PRODUCT USED FOR UNKNOWN INDICATION
     Dosage: ORAL
     Route: 048
  2. FOSAMAX [Suspect]
     Indication: PRODUCT USED FOR UNKNOWN INDICATION
     Dosage: 70 MG, 1/WEEK, ORAL
     Route: 048
  3. ACTOS [Concomitant]
  4. ADALAT CC [Concomitant]
  5. AVAPRO [Concomitant]
  6. DETROL LA [Concomitant]
  7. EZETIMIBE [Concomitant]
  8. GLYBURIDE [Concomitant]
  9. METHYLDOPA [Concomitant]
  10. RABEPRAZOLE SODIUM [Concomitant]
  11. VITAMIN A [Concomitant]
  12. ZOLOFT [Concomitant]

REACTIONS (4)
  - CONDITION AGGRAVATED [None]
  - FIBULA FRACTURE [None]
  - PATHOLOGICAL FRACTURE [None]
  - STRESS FRACTURE [None]
